FAERS Safety Report 8033042-8 (Version None)
Quarter: 2012Q1

REPORT INFORMATION
  Report Type: 
  Country: None (occurrence: None)
  Receive Date: 20120110
  Receipt Date: 20120105
  Transmission Date: 20120608
  Serious: Yes (Hospitalization)
  Sender: FDA-Public Use
  Company Number: FR-PFIZER INC-2012002890

PATIENT
  Age: 81 Year
  Sex: Male

DRUGS (12)
  1. RAMIPRIL [Suspect]
     Dosage: 1.25 MG, 1X/DAY
     Route: 048
  2. PREVISCAN [Suspect]
     Dosage: 0.75 DF, 1X/DAY
  3. RAMIPRIL [Suspect]
     Dosage: 2.5 MG, 1X/DAY
     Route: 048
  4. INSULIN HUMAN INSULATARD [Suspect]
     Dosage: 40 IU/L, 1X/DAY
     Route: 058
  5. ACTRAPID [Suspect]
     Dosage: 5 IU, 2X/DAY
     Route: 058
  6. EFFEXOR XR [Suspect]
     Dosage: 37.5 MG, 2X/DAY
     Route: 048
  7. FUROSEMIDE [Suspect]
     Dosage: 40 MG, 2X/DAY
     Route: 048
  8. REPAGLINIDE [Suspect]
     Dosage: 2 MG, 3X/DAY
     Route: 048
  9. AMIODARONE HCL [Suspect]
     Dosage: 0.5 DF, 1X/DAY
     Route: 048
  10. VADILEX [Suspect]
     Dosage: 20 MG, 2X/DAY
     Route: 048
  11. LANSOPRAZOLE [Suspect]
     Dosage: 1 DF, 1X/DAY
     Route: 048
  12. LEVOTHYROXINE SODIUM [Suspect]
     Dosage: 50 UG, 1X/DAY
     Route: 048

REACTIONS (1)
  - DERMATITIS EXFOLIATIVE [None]
